FAERS Safety Report 4832678-2 (Version None)
Quarter: 2005Q4

REPORT INFORMATION
  Report Type: 
  Country: None (occurrence: None)
  Receive Date: 20051117
  Receipt Date: 20051108
  Transmission Date: 20060501
  Serious: Yes (Life-Threatening)
  Sender: FDA-Public Use
  Company Number: 2005BH002823

PATIENT

DRUGS (2)
  1. SODIUM CHLORIDE 0.9% [Suspect]
     Dosage: ONCE
     Dates: start: 20051107, end: 20051107
  2. HEPARIN [Concomitant]

REACTIONS (3)
  - AIR EMBOLISM [None]
  - CATHETER RELATED COMPLICATION [None]
  - CEREBRAL ARTERY EMBOLISM [None]
